FAERS Safety Report 22644019 (Version 1)
Quarter: 2023Q2

REPORT INFORMATION
  Report Type: Spontaneous
  Country: DK (occurrence: DK)
  Receive Date: 20230627
  Receipt Date: 20230627
  Transmission Date: 20230722
  Serious: Yes (Hospitalization)
  Sender: FDA-Public Use
  Company Number: None

PATIENT
  Age: 83 Year
  Sex: Female

DRUGS (3)
  1. METHOTREXATE [Suspect]
     Active Substance: METHOTREXATE
     Indication: Rheumatoid arthritis
     Dosage: 15 MG, QW
     Route: 048
     Dates: start: 2018
  2. FOLIC ACID [Concomitant]
     Active Substance: FOLIC ACID
     Indication: Vitamin supplementation
     Dosage: UNK
     Route: 065
     Dates: start: 20180830
  3. ELIQUIS [Concomitant]
     Active Substance: APIXABAN
     Indication: Thrombosis prophylaxis
     Dosage: UNK
     Route: 065
     Dates: start: 20220405

REACTIONS (4)
  - Lumbar vertebral fracture [Recovering/Resolving]
  - Pain [Not Recovered/Not Resolved]
  - Pelvic fracture [Recovering/Resolving]
  - Fractured sacrum [Recovering/Resolving]

NARRATIVE: CASE EVENT DATE: 20220501
